FAERS Safety Report 11761337 (Version 26)
Quarter: 2021Q2

REPORT INFORMATION
  Report Type: Spontaneous
  Country: BR (occurrence: BR)
  Receive Date: 20151120
  Receipt Date: 20210401
  Transmission Date: 20210716
  Serious: Yes (Hospitalization, Other)
  Sender: FDA-Public Use
  Company Number: BR-GLAXOSMITHKLINE-BR2015GSK165601

PATIENT
  Sex: Female
  Weight: 79 kg

DRUGS (4)
  1. BENLYSTA [Suspect]
     Active Substance: BELIMUMAB
     Indication: SYSTEMIC LUPUS ERYTHEMATOSUS
     Dosage: UNK
     Dates: start: 20150914
  2. BENLYSTA [Suspect]
     Active Substance: BELIMUMAB
     Dosage: 720 MG, UNK
  3. AZATHIOPRINE. [Concomitant]
     Active Substance: AZATHIOPRINE
     Indication: PRODUCT USED FOR UNKNOWN INDICATION
     Dosage: UNK
  4. PREDNISOLONE. [Concomitant]
     Active Substance: PREDNISOLONE
     Indication: PRODUCT USED FOR UNKNOWN INDICATION
     Dosage: UNK

REACTIONS (16)
  - Infection [Unknown]
  - Inappropriate schedule of product administration [Recovered/Resolved]
  - Circumstance or information capable of leading to medication error [Recovered/Resolved]
  - Lung disorder [Unknown]
  - Cough [Recovered/Resolved]
  - Sepsis [Unknown]
  - Investigation abnormal [Unknown]
  - Product dose omission issue [Not Recovered/Not Resolved]
  - Cardiac arrest [Unknown]
  - Coma [Unknown]
  - Pyrexia [Recovered/Resolved]
  - Pneumonia [Recovered/Resolved]
  - Upper respiratory tract infection [Unknown]
  - Product availability issue [Unknown]
  - Immunodeficiency [Unknown]
  - Sinusitis [Unknown]
